FAERS Safety Report 5900165-6 (Version None)
Quarter: 2008Q3

REPORT INFORMATION
  Report Type: 
  Country: None (occurrence: None)
  Receive Date: 20080926
  Receipt Date: 20080918
  Transmission Date: 20090109
  Serious: Yes (Death, Hospitalization)
  Sender: FDA-Public Use
  Company Number: IT-SANOFI-SYNTHELABO-A06200800556

PATIENT
  Sex: Female

DRUGS (5)
  1. DECADRON [Concomitant]
     Indication: DRUG USE FOR UNKNOWN INDICATION
     Route: 042
  2. ZOFRAN [Concomitant]
     Indication: DRUG USE FOR UNKNOWN INDICATION
     Route: 042
  3. TENORETIC 100 [Concomitant]
     Indication: DRUG USE FOR UNKNOWN INDICATION
     Route: 048
  4. ELOXATIN [Suspect]
     Indication: COLON CANCER STAGE III
     Route: 041
     Dates: start: 20080722, end: 20080722
  5. FLUOROURACILE TEVA [Suspect]
     Indication: COLON CANCER STAGE III
     Route: 042
     Dates: start: 20080722, end: 20080723

REACTIONS (6)
  - ANAEMIA [None]
  - ELECTROLYTE IMBALANCE [None]
  - ENTEROCOLITIS INFECTIOUS [None]
  - LEUKOPENIA [None]
  - PROTEIN TOTAL ABNORMAL [None]
  - THROMBOCYTOPENIA [None]
